FAERS Safety Report 19091961 (Version 1)
Quarter: 2021Q2

REPORT INFORMATION
  Report Type: Spontaneous
  Country: US (occurrence: US)
  Receive Date: 20210402
  Receipt Date: 20210402
  Transmission Date: 20210717
  Serious: Yes (Life-Threatening, Hospitalization)
  Sender: FDA-Public Use
  Company Number: None

PATIENT
  Age: 39 Year
  Sex: Female
  Weight: 70.65 kg

DRUGS (1)
  1. DELSYM [Suspect]
     Active Substance: DEXTROMETHORPHAN
     Indication: COUGH
     Route: 048

REACTIONS (4)
  - Heart rate increased [None]
  - Dizziness [None]
  - Hyperhidrosis [None]
  - Near death experience [None]

NARRATIVE: CASE EVENT DATE: 20130610
